FAERS Safety Report 4373642-X (Version None)
Quarter: 2004Q1

REPORT INFORMATION
  Report Type: 
  Country: None (occurrence: None)
  Receive Date: 20040305
  Receipt Date: 20031203
  Transmission Date: 20041129
  Serious: Yes (Other)
  Sender: FDA-Public Use
  Company Number: 2003UW15958

PATIENT
  Age: 60 Year
  Sex: Male
  Weight: 74.8435 kg

DRUGS (5)
  1. CRESTOR [Suspect]
     Indication: BLOOD CHOLESTEROL INCREASED
  2. ALTACE [Concomitant]
  3. E-VITAMIN [Concomitant]
  4. PRILOSEC [Concomitant]
  5. RISPERDAL [Concomitant]

REACTIONS (2)
  - FATIGUE [None]
  - MYALGIA [None]
